FAERS Safety Report 14184796 (Version 2)
Quarter: 2017Q4

REPORT INFORMATION
  Report Type: Report from Study
  Country: US (occurrence: US)
  Receive Date: 20171113
  Receipt Date: 20171128
  Transmission Date: 20180321
  Serious: Yes (Hospitalization)
  Sender: FDA-Public Use
  Company Number: US-ACTELION-A-NJ2017-162198

PATIENT
  Age: 67 Year
  Sex: Female
  Weight: 61.22 kg

DRUGS (11)
  1. UPTRAVI [Suspect]
     Active Substance: SELEXIPAG
     Indication: PULMONARY ARTERIAL HYPERTENSION
     Dosage: 1600 MCG, QD
     Route: 048
  2. OPSUMIT [Suspect]
     Active Substance: MACITENTAN
     Indication: PULMONARY ARTERIAL HYPERTENSION
     Dosage: 10 MG, QD
     Route: 048
  3. REVATIO [Concomitant]
     Active Substance: SILDENAFIL CITRATE
  4. ALPRAZOLAM. [Concomitant]
     Active Substance: ALPRAZOLAM
  5. ALDACTONE [Concomitant]
     Active Substance: SPIRONOLACTONE
  6. SYNTHROID [Concomitant]
     Active Substance: LEVOTHYROXINE SODIUM
  7. ZYRTEC [Concomitant]
     Active Substance: CETIRIZINE HYDROCHLORIDE
  8. MUCINEX [Concomitant]
     Active Substance: GUAIFENESIN
  9. CELEXA [Concomitant]
     Active Substance: CITALOPRAM HYDROBROMIDE
  10. BUMETANIDE. [Concomitant]
     Active Substance: BUMETANIDE
  11. OXYGEN. [Concomitant]
     Active Substance: OXYGEN

REACTIONS (10)
  - Skin abrasion [Unknown]
  - Oxygen consumption increased [Unknown]
  - Dizziness [Unknown]
  - Pain [Unknown]
  - Clumsiness [Unknown]
  - Fall [Recovering/Resolving]
  - Dyspnoea [Unknown]
  - Head injury [Unknown]
  - Chest pain [Unknown]
  - Contusion [Recovering/Resolving]

NARRATIVE: CASE EVENT DATE: 20171025
